FAERS Safety Report 5454108-2 (Version None)
Quarter: 2007Q3

REPORT INFORMATION
  Report Type: 
  Country: None (occurrence: None)
  Receive Date: 20070917
  Receipt Date: 20070709
  Transmission Date: 20080115
  Serious: Yes (Other)
  Sender: FDA-Public Use
  Company Number: US-ASTRAZENECA-2006UW09195

PATIENT
  Age: 404 Month
  Sex: Male

DRUGS (1)
  1. SEROQUEL [Suspect]
     Indication: BIPOLAR DISORDER
     Dosage: APPROX. 200-400 MG
     Route: 048
     Dates: start: 19980101, end: 20060101

REACTIONS (1)
  - PANCREATITIS [None]
